FAERS Safety Report 8514137-9 (Version None)
Quarter: 2012Q3

REPORT INFORMATION
  Report Type: 
  Country: None (occurrence: None)
  Receive Date: 20120717
  Receipt Date: 20120709
  Transmission Date: 20120928
  Serious: Yes (Other)
  Sender: FDA-Public Use
  Company Number: CA-JNJFOC-20120704094

PATIENT
  Sex: Male
  Weight: 127.2 kg

DRUGS (3)
  1. REMICADE [Suspect]
     Indication: CROHN'S DISEASE
     Route: 042
  2. REMICADE [Suspect]
     Route: 042
     Dates: start: 20120611
  3. CHOLESTEROL PILLS [Concomitant]
     Indication: BLOOD CHOLESTEROL
     Route: 065

REACTIONS (2)
  - SKIN PLAQUE [None]
  - NEUROPATHY PERIPHERAL [None]
